FAERS Safety Report 11945043 (Version 1)
Quarter: 2016Q1

REPORT INFORMATION
  Report Type: Spontaneous
  Country: CA (occurrence: CA)
  Receive Date: 20160125
  Receipt Date: 20160125
  Transmission Date: 20160526
  Serious: Yes (Disabling)
  Sender: FDA-Public Use
  Company Number: CA-TEVA-627202ACC

PATIENT
  Age: 64 Year
  Sex: Female
  Weight: 59.02 kg

DRUGS (1)
  1. CIPROFLOXACIN. [Suspect]
     Active Substance: CIPROFLOXACIN
     Indication: CYSTITIS
     Dosage: 1000 MILLIGRAM DAILY;
     Route: 048

REACTIONS (6)
  - Myalgia [Recovering/Resolving]
  - Mobility decreased [Recovering/Resolving]
  - Muscle rigidity [Recovering/Resolving]
  - Arthralgia [Recovering/Resolving]
  - Inflammation [Recovering/Resolving]
  - Musculoskeletal stiffness [Recovering/Resolving]
